FAERS Safety Report 24544269 (Version 1)
Quarter: 2024Q4

REPORT INFORMATION
  Report Type: Report from Study
  Country: US (occurrence: US)
  Receive Date: 20241024
  Receipt Date: 20241024
  Transmission Date: 20250115
  Serious: Yes (Hospitalization)
  Sender: ROCHE
  Company Number: US-ROCHE-10000111179

PATIENT
  Age: 51 Year
  Sex: Female
  Weight: 64.41 kg

DRUGS (3)
  1. OCREVUS [Suspect]
     Active Substance: OCRELIZUMAB
     Indication: Relapsing-remitting multiple sclerosis
     Route: 042
  2. SUCRALFATE [Concomitant]
     Active Substance: SUCRALFATE
     Indication: Gastric ulcer
     Route: 048
     Dates: start: 20241011
  3. PROTRIPTYLINE [Concomitant]
     Active Substance: PROTRIPTYLINE
     Indication: Gastric ulcer
     Dosage: AT NIGH TIME
     Route: 048
     Dates: start: 20241011

REACTIONS (4)
  - Loss of consciousness [Recovered/Resolved]
  - Urinary tract infection [Unknown]
  - Gastric ulcer [Not Recovered/Not Resolved]
  - Hypotension [Unknown]

NARRATIVE: CASE EVENT DATE: 20240923
